FAERS Safety Report 21187355 (Version 2)
Quarter: 2022Q3

REPORT INFORMATION
  Report Type: Report from Study
  Country: FR (occurrence: FR)
  Receive Date: 20220808
  Receipt Date: 20220822
  Transmission Date: 20221027
  Serious: Yes (Other)
  Sender: FDA-Public Use
  Company Number: FR-CELGENE-FRA-20210607863

PATIENT
  Age: 70 Year
  Sex: Male
  Weight: 57 kg

DRUGS (17)
  1. ISTODAX [Suspect]
     Active Substance: ROMIDEPSIN
     Indication: Cutaneous T-cell lymphoma
     Dosage: 14 MILLIGRAM/SQ. METER
     Route: 065
     Dates: start: 20210316
  2. ISTODAX [Suspect]
     Active Substance: ROMIDEPSIN
     Indication: Cutaneous T-cell lymphoma
     Dosage: 14 MILLIGRAM/SQ. METER
     Route: 065
     Dates: start: 20210325
  3. ISTODAX [Suspect]
     Active Substance: ROMIDEPSIN
     Dosage: 14 MILLIGRAM/SQ. METER
     Route: 065
     Dates: start: 20210406
  4. ISTODAX [Suspect]
     Active Substance: ROMIDEPSIN
     Dosage: 14 MILLIGRAM/SQ. METER
     Route: 065
     Dates: start: 20210406
  5. ISTODAX [Suspect]
     Active Substance: ROMIDEPSIN
     Dosage: 14 MILLIGRAM/SQ. METER
     Route: 065
     Dates: start: 20210610
  6. ISTODAX [Suspect]
     Active Substance: ROMIDEPSIN
     Dosage: 10 MILLIGRAM/SQ. METER
     Route: 065
     Dates: start: 20210617
  7. ISTODAX [Suspect]
     Active Substance: ROMIDEPSIN
     Dosage: 14 MILLIGRAM/SQ. METER
     Route: 065
     Dates: start: 20210624
  8. ISTODAX [Suspect]
     Active Substance: ROMIDEPSIN
     Dosage: FREQUENCY TEXT: NOT PROVIDED
     Route: 065
     Dates: start: 20210930
  9. ISTODAX [Suspect]
     Active Substance: ROMIDEPSIN
     Dosage: FREQUENCY TEXT: NOT PROVIDED
     Route: 065
     Dates: start: 20211014
  10. ISTODAX [Suspect]
     Active Substance: ROMIDEPSIN
     Dosage: FREQUENCY TEXT: NOT PROVIDED
     Route: 065
     Dates: start: 20220203
  11. ISTODAX [Suspect]
     Active Substance: ROMIDEPSIN
     Dosage: FREQUENCY TEXT: NOT PROVIDED
     Route: 065
     Dates: start: 20220210
  12. ISTODAX [Suspect]
     Active Substance: ROMIDEPSIN
     Dosage: FREQUENCY TEXT: NOT PROVIDED
     Route: 065
     Dates: start: 20220217
  13. TARGRETIN [Concomitant]
     Active Substance: BEXAROTENE
     Indication: Product used for unknown indication
     Dosage: FREQUENCY TEXT: NOT PROVIDED
     Route: 065
  14. GEMCITABINE [Concomitant]
     Active Substance: GEMCITABINE
     Indication: Product used for unknown indication
     Dosage: FREQUENCY TEXT: NOT PROVIDED
     Route: 065
  15. MOGAMULIZUMAB [Concomitant]
     Active Substance: MOGAMULIZUMAB
     Indication: Product used for unknown indication
     Dosage: FREQUENCY TEXT: NOT PROVIDED
     Route: 065
  16. intracorporeal interferon [Concomitant]
     Indication: Product used for unknown indication
     Dosage: FREQUENCY TEXT: NOT PROVIDED
     Route: 065
  17. ONDANSETRON [Concomitant]
     Active Substance: ONDANSETRON
     Indication: Prophylaxis
     Dosage: FREQUENCY TEXT: NOT PROVIDED
     Route: 065

REACTIONS (4)
  - Hepatic failure [Unknown]
  - Thrombocytopenia [Recovered/Resolved]
  - Nausea [Unknown]
  - Asthenia [Unknown]
